FAERS Safety Report 15614998 (Version 1)
Quarter: 2018Q4

REPORT INFORMATION
  Report Type: Other
  Country: DE (occurrence: DE)
  Receive Date: 20181114
  Receipt Date: 20181114
  Transmission Date: 20190205
  Serious: Yes (Death)
  Sender: FDA-Public Use
  Company Number: DE-ORCHID HEALTHCARE-2058823

PATIENT
  Age: 52 Year
  Sex: Male
  Weight: 58 kg

DRUGS (6)
  1. RAMIPRILATE [Suspect]
     Active Substance: RAMIPRILAT
     Route: 065
  2. VENLAFAXINE HYDROCHLORIDE. [Suspect]
     Active Substance: VENLAFAXINE HYDROCHLORIDE
     Route: 065
  3. N-ETHYLDESCHLOROKETAMINE [Suspect]
     Active Substance: DESCHLOROKETAMINE
     Route: 065
  4. DESCHLOROKETAMINE [Suspect]
     Active Substance: DESCHLOROKETAMINE
     Route: 065
  5. BISOPROLOL [Suspect]
     Active Substance: BISOPROLOL
     Route: 065
  6. CAFFEINE. [Suspect]
     Active Substance: CAFFEINE
     Route: 065

REACTIONS (8)
  - Toxicity to various agents [Fatal]
  - Fluid overload [Fatal]
  - Right atrial hypertrophy [Fatal]
  - Pulmonary oedema [Fatal]
  - Right ventricular hypertrophy [Fatal]
  - Drug abuse [Fatal]
  - Brain oedema [Fatal]
  - Respiratory tract infection [Fatal]
